FAERS Safety Report 9158567 (Version 2)
Quarter: 2013Q1

REPORT INFORMATION
  Report Type: Report from Study
  Country: US (occurrence: US)
  Receive Date: 20130312
  Receipt Date: 20130326
  Transmission Date: 20140127
  Serious: Yes (Congenital Anomaly)
  Sender: FDA-Public Use
  Company Number: US-US-EMD SERONO, INC.-7197949

PATIENT
  Sex: Male

DRUGS (1)
  1. REBIF [Suspect]
     Indication: MULTIPLE SCLEROSIS
     Route: 064
     Dates: start: 20120604, end: 201302

REACTIONS (2)
  - Cardiac septal defect [Not Recovered/Not Resolved]
  - Foetal exposure during pregnancy [Unknown]
